FAERS Safety Report 20556219 (Version 1)
Quarter: 2022Q1

REPORT INFORMATION
  Report Type: Spontaneous
  Country: JP (occurrence: JP)
  Receive Date: 20220305
  Receipt Date: 20220305
  Transmission Date: 20220423
  Serious: Yes (Death, Hospitalization, Other)
  Sender: FDA-Public Use
  Company Number: JP-ASTELLAS-2022JP003434

PATIENT
  Age: 87 Year
  Sex: Male
  Weight: 60 kg

DRUGS (18)
  1. HARNAL [Suspect]
     Active Substance: TAMSULOSIN HYDROCHLORIDE
     Indication: Product used for unknown indication
     Dosage: 0.2 MG/DAY, UNKNOWN FREQ.
     Route: 048
  2. ALFACALCIDOL [Concomitant]
     Active Substance: ALFACALCIDOL
     Indication: Product used for unknown indication
     Dosage: 0.125 UG/DAY, UNKNOWN FREQ.
     Route: 048
  3. AZOSEMIDE [Concomitant]
     Active Substance: AZOSEMIDE
     Indication: Product used for unknown indication
     Dosage: 60 MG/DAY, UNKNOWN FREQ.
     Route: 048
  4. SODIUM CITRATE [Concomitant]
     Active Substance: SODIUM CITRATE
     Indication: Product used for unknown indication
     Dosage: 50 MG/DAY, UNKNOWN FREQ.
     Route: 048
  5. INSULIN ASPART [Concomitant]
     Active Substance: INSULIN ASPART
     Indication: Product used for unknown indication
     Dosage: 20 IU/DAY, UNKNOWN FREQ.
     Route: 048
  6. BICALUTAMIDE [Concomitant]
     Active Substance: BICALUTAMIDE
     Indication: Prostate cancer
     Dosage: 80 MG/DAY, UNKNOWN FREQ.
     Route: 048
  7. DUTASTERIDE [Concomitant]
     Active Substance: DUTASTERIDE
     Indication: Product used for unknown indication
     Dosage: 0.5 MG/DAY, UNKNOWN FREQ.
     Route: 048
  8. RAMELTEON [Concomitant]
     Active Substance: RAMELTEON
     Indication: Product used for unknown indication
     Dosage: 8 MG/DAY, UNKNOWN FREQ.
     Route: 048
  9. MEROPENEM [Concomitant]
     Active Substance: MEROPENEM
     Indication: Infection
     Dosage: 0.5 G/DAY, UNKNOWN FREQ.
     Route: 065
  10. DEXAMETHASONE [Concomitant]
     Active Substance: DEXAMETHASONE
     Indication: COVID-19
     Dosage: 6.6 MG/DAY, UNKNOWN FREQ.
     Route: 065
  11. DEXAMETHASONE [Concomitant]
     Active Substance: DEXAMETHASONE
     Dosage: 4 MG/DAY, UNKNOWN FREQ.
     Route: 065
  12. REMDESIVIR [Concomitant]
     Active Substance: REMDESIVIR
     Indication: COVID-19
     Dosage: 200 MG/DAY, UNKNOWN FREQ.
     Route: 065
  13. REMDESIVIR [Concomitant]
     Active Substance: REMDESIVIR
     Dosage: 100 MG/DAY, UNKNOWN FREQ.
     Route: 065
  14. CEFEPIME HYDROCHLORIDE [Concomitant]
     Active Substance: CEFEPIME HYDROCHLORIDE
     Indication: Infection
     Dosage: 1 G/DAY, UNKNOWN FREQ.
     Route: 065
  15. WARFARIN POTASSIUM [Concomitant]
     Active Substance: WARFARIN POTASSIUM
     Indication: Deep vein thrombosis
     Dosage: UNK UNK, UNKNOWN FREQ.
     Route: 048
  16. THROMBOMODULIN ALFA [Concomitant]
     Active Substance: THROMBOMODULIN ALFA
     Indication: Disseminated intravascular coagulation
     Dosage: 12,800 U/DAY, UNKNOWN FREQ.
     Route: 065
  17. INSULIN NOS [Concomitant]
     Active Substance: INSULIN NOS
     Indication: Hyperglycaemia
     Dosage: UNK UNK, UNKNOWN FREQ.
     Route: 065
  18. MORPHINE HYDROCHLORIDE [Concomitant]
     Active Substance: MORPHINE HYDROCHLORIDE
     Indication: Dyspnoea
     Dosage: 10 MG/DAY, UNKNOWN FREQ.
     Route: 065

REACTIONS (5)
  - COVID-19 [Fatal]
  - Depressed level of consciousness [Fatal]
  - Deep vein thrombosis [Unknown]
  - Hepatic function abnormal [Unknown]
  - General physical health deterioration [Unknown]
